FAERS Safety Report 18051629 (Version 2)
Quarter: 2021Q1

REPORT INFORMATION
  Report Type: Report from Study
  Country: US (occurrence: US)
  Receive Date: 20200722
  Receipt Date: 20210120
  Transmission Date: 20210419
  Serious: Yes (Hospitalization, Other)
  Sender: FDA-Public Use
  Company Number: US-AMGEN-USASL2020114437

PATIENT
  Age: 43 Year
  Sex: Male

DRUGS (1)
  1. REPATHA [Suspect]
     Active Substance: EVOLOCUMAB
     Indication: BLOOD CHOLESTEROL ABNORMAL
     Dosage: 420 MILLIGRAM, QMO
     Route: 065
     Dates: end: 2020

REACTIONS (4)
  - Blood cholesterol decreased [Unknown]
  - Cardiac disorder [Unknown]
  - Protein deficiency [Unknown]
  - Depression [Unknown]
